FAERS Safety Report 8768508 (Version 2)
Quarter: 2012Q4

REPORT INFORMATION
  Report Type: 
  Country: JP (occurrence: JP)
  Receive Date: 20120904
  Receipt Date: 20121220
  Transmission Date: 20130627
  Serious: Yes (Hospitalization)
  Sender: FDA-Public Use
  Company Number: JP-009507513-1208JPN011805

PATIENT
  Age: 44 Year
  Sex: Male
  Weight: 61 kg

DRUGS (17)
  1. PEGINTRON [Suspect]
     Indication: CHRONIC HEPATITIS C
     Dosage: 1.5 Microgram per kilogram, qw
     Route: 058
     Dates: start: 20120414, end: 20120420
  2. PEGINTRON [Suspect]
     Dosage: 0.75 Microgram per kilogram, qw
     Route: 058
     Dates: start: 20120421, end: 20120427
  3. PEGINTRON [Suspect]
     Dosage: 1.5 Microgram per kilogram, qw
     Route: 058
     Dates: start: 20120428
  4. REBETOL [Suspect]
     Indication: CHRONIC HEPATITIS C
     Dosage: 800 mg, qd
     Route: 048
     Dates: start: 20120414, end: 20120418
  5. REBETOL [Suspect]
     Dosage: 800 mg, qd
     Route: 048
     Dates: start: 20120419, end: 20120511
  6. REBETOL [Suspect]
     Dosage: 600 mg, qd
     Route: 048
     Dates: start: 20120512, end: 20120517
  7. REBETOL [Suspect]
     Dosage: 400 mg, qd
     Route: 048
     Dates: start: 20120518, end: 20120531
  8. REBETOL [Suspect]
     Dosage: 200 mg, qd
     Route: 048
     Dates: start: 20120601, end: 20120623
  9. TELAVIC [Suspect]
     Indication: CHRONIC HEPATITIS C
     Dosage: 2250 mg, qd
     Route: 048
     Dates: start: 20120414, end: 20120418
  10. TELAVIC [Suspect]
     Dosage: 1500 mg, qd
     Route: 048
     Dates: start: 20120419, end: 20120424
  11. TELAVIC [Suspect]
     Dosage: 2250 mg, qd
     Route: 048
     Dates: start: 20120425, end: 20120706
  12. PROTECADIN [Concomitant]
     Indication: ABDOMINAL DISCOMFORT
     Dosage: 20 mg, qd; formulation: POR
     Route: 048
     Dates: start: 20120416
  13. AKUMEIN [Concomitant]
     Indication: DIARRHOEA
     Dosage: 1000 ml, qd
     Route: 042
     Dates: start: 20120418, end: 20120423
  14. BIOFERMIN (BACILLUS SUBTILIS (+) LACTOBACILLUS ACIDOPHILUS (+) STREPTO [Concomitant]
     Indication: DIARRHOEA
     Dosage: 3 g, qd; formulation: POR
     Route: 048
     Dates: start: 20120419, end: 20120502
  15. FEBURIC [Concomitant]
     Indication: HYPERURICAEMIA
     Dosage: 10 mg, qd; formulation: POR
     Route: 048
     Dates: start: 20120426, end: 20120511
  16. FEBURIC [Concomitant]
     Dosage: 20 mg, qd, Formulation: POR
     Route: 048
     Dates: start: 20120512
  17. GASMOTIN [Concomitant]
     Indication: ABDOMINAL DISCOMFORT
     Dosage: 15 mg, qd; formulation: POR
     Route: 048
     Dates: start: 20120427

REACTIONS (1)
  - Diarrhoea [Recovering/Resolving]
